FAERS Safety Report 15839788 (Version 1)
Quarter: 2019Q1

REPORT INFORMATION
  Report Type: Spontaneous
  Country: US (occurrence: US)
  Receive Date: 20190117
  Receipt Date: 20190117
  Transmission Date: 20190417
  Serious: Yes (Disabling)
  Sender: FDA-Public Use
  Company Number: US-OTSUKA-2018_020324

PATIENT

DRUGS (1)
  1. ABILIFY [Suspect]
     Active Substance: ARIPIPRAZOLE
     Indication: PRODUCT USED FOR UNKNOWN INDICATION
     Dosage: UNK
     Route: 065
     Dates: start: 2002, end: 2013

REACTIONS (9)
  - Condition aggravated [Unknown]
  - Obsessive-compulsive disorder [Unknown]
  - Emotional distress [Unknown]
  - Pain [Unknown]
  - Economic problem [Unknown]
  - Injury [Unknown]
  - Anxiety [Unknown]
  - Disability [Unknown]
  - Anhedonia [Unknown]

NARRATIVE: CASE EVENT DATE: 20021220
